FAERS Safety Report 22356663 (Version 1)
Quarter: 2023Q2

REPORT INFORMATION
  Report Type: Spontaneous
  Country: GB (occurrence: GB)
  Receive Date: 20230523
  Receipt Date: 20230523
  Transmission Date: 20230722
  Serious: Yes (Disabling)
  Sender: FDA-Public Use
  Company Number: GB-SOLVAY-00302000560

PATIENT
  Age: 74 Year
  Sex: Male

DRUGS (11)
  1. AMLODIPINE [Suspect]
     Active Substance: AMLODIPINE BESYLATE
     Indication: Ill-defined disorder
     Dosage: 10 MILLIGRAM
     Route: 065
  2. ATORVASTATIN [Suspect]
     Active Substance: ATORVASTATIN
     Indication: Ill-defined disorder
     Dosage: 10 MILLIGRAM
     Route: 065
  3. LACTULOSE [Suspect]
     Active Substance: LACTULOSE
     Indication: Ill-defined disorder
     Dosage: UNK (3.35MG/5ML BID)
     Route: 065
  4. ALBUTEROL [Suspect]
     Active Substance: ALBUTEROL
     Indication: Ill-defined disorder
     Dosage: 100 MICROGRAM
     Route: 055
  5. ISOSORBIDE [Suspect]
     Active Substance: ISOSORBIDE
     Indication: Ill-defined disorder
     Dosage: 60 MILLIGRAM
     Route: 065
  6. WARFARIN [Suspect]
     Active Substance: WARFARIN
     Indication: Ill-defined disorder
     Dosage: UNK
     Route: 065
  7. BENDROFLUMETHIAZIDE [Suspect]
     Active Substance: BENDROFLUMETHIAZIDE
     Indication: Ill-defined disorder
     Dosage: 2.5 MILLIGRAM
     Route: 065
  8. DIGOXIN [Suspect]
     Active Substance: DIGOXIN
     Indication: Ill-defined disorder
     Dosage: 125 MICROGRAM
     Route: 065
  9. ACETAMINOPHEN [Suspect]
     Active Substance: ACETAMINOPHEN
     Indication: Ill-defined disorder
     Dosage: UNK
     Route: 065
  10. THEOPHYLLINE [Suspect]
     Active Substance: THEOPHYLLINE
     Indication: Chronic obstructive pulmonary disease
     Dosage: 500 MILLIGRAM DAILY; 250 MILLIGRAM, BID; THERAPY DURATION: 16 DAYS
     Route: 065
     Dates: start: 20011126, end: 20011211
  11. TRANDOLAPRIL [Suspect]
     Active Substance: TRANDOLAPRIL
     Indication: Ill-defined disorder
     Dosage: 2 MILLIGRAM
     Route: 065

REACTIONS (1)
  - Depression suicidal [Unknown]

NARRATIVE: CASE EVENT DATE: 20011128
